FAERS Safety Report 6018849-0 (Version None)
Quarter: 2008Q4

REPORT INFORMATION
  Report Type: 
  Country: None (occurrence: None)
  Receive Date: 20081224
  Receipt Date: 20081219
  Transmission Date: 20090506
  Serious: Yes (Other)
  Sender: FDA-Public Use
  Company Number: GB-RANBAXY-2008RR-20091

PATIENT
  Age: 2 Year
  Sex: Female
  Weight: 12.8 kg

DRUGS (2)
  1. CIPROFLOXACIN HCL [Suspect]
     Indication: LOWER RESPIRATORY TRACT INFECTION
     Route: 048
  2. CIPROFLOXACIN HCL [Concomitant]
     Dosage: UNK
     Route: 048
     Dates: start: 20080701

REACTIONS (2)
  - JOINT SWELLING [None]
  - WEIGHT BEARING DIFFICULTY [None]
